FAERS Safety Report 8192215-4 (Version None)
Quarter: 2012Q1

REPORT INFORMATION
  Report Type: 
  Country: None (occurrence: None)
  Receive Date: 20120307
  Receipt Date: 20120302
  Transmission Date: 20120608
  Serious: Yes (Other)
  Sender: FDA-Public Use
  Company Number: US-PFIZER INC-2012013042

PATIENT
  Sex: Female

DRUGS (2)
  1. REVATIO [Suspect]
     Dosage: 3 TABS TID
  2. REVATIO [Suspect]
     Indication: PULMONARY HYPERTENSION
     Dosage: 2 TABS TID
     Dates: start: 20090415

REACTIONS (1)
  - BLOOD PRESSURE INCREASED [None]
